FAERS Safety Report 8260905-0 (Version None)
Quarter: 2012Q2

REPORT INFORMATION
  Report Type: 
  Country: None (occurrence: None)
  Receive Date: 20120402
  Receipt Date: 20120319
  Transmission Date: 20120825
  Serious: No
  Sender: FDA-Public Use
  Company Number: 2012-00094

PATIENT
  Sex: Female

DRUGS (1)
  1. UNSPECIFIED ZICAN PRODUCT [Suspect]
     Indication: NASOPHARYNGITIS

REACTIONS (2)
  - AGEUSIA [None]
  - ANOSMIA [None]
